FAERS Safety Report 8963772 (Version 1)
Quarter: 2012Q4

REPORT INFORMATION
  Report Type: 
  Country: US (occurrence: US)
  Receive Date: 20121213
  Receipt Date: 20121213
  Transmission Date: 20130627
  Serious: No
  Sender: FDA-Public Use
  Company Number: US-ASTRAZENECA-2011SE61655

PATIENT
  Age: 47 Year
  Sex: Female
  Weight: 99.3 kg

DRUGS (17)
  1. NEXIUM [Suspect]
     Route: 048
  2. ADVAIR [Concomitant]
  3. LIDOCAINE GEL [Concomitant]
  4. PREMARIN [Concomitant]
  5. SPIRIVA HANDIHALER [Concomitant]
  6. XOPENEX [Concomitant]
  7. LEVAQUIN [Concomitant]
  8. ALDACTONE [Concomitant]
  9. COUMADIN [Concomitant]
  10. LOSARTAN POTASSIUM HCTZ [Concomitant]
  11. MEVACOR [Concomitant]
  12. NORCO [Concomitant]
  13. PREDNISONE [Concomitant]
  14. VITAMIN D [Concomitant]
  15. CYANOCOBALAMIN [Concomitant]
  16. FLEXERIL [Concomitant]
  17. TESSALON PERLES [Concomitant]

REACTIONS (6)
  - Gastrooesophageal reflux disease [Unknown]
  - Dysphagia [Unknown]
  - Eosinophilic oesophagitis [Unknown]
  - Candidiasis [Unknown]
  - Gastrooesophageal reflux disease [Unknown]
  - Intentional drug misuse [Unknown]
